FAERS Safety Report 13180053 (Version 2)
Quarter: 2018Q1

REPORT INFORMATION
  Report Type: Spontaneous
  Country: FR (occurrence: FR)
  Receive Date: 20170202
  Receipt Date: 20180308
  Transmission Date: 20180508
  Serious: Yes (Other)
  Sender: FDA-Public Use
  Company Number: FR-ABBVIE-17P-056-1854423-00

PATIENT
  Age: 37 Year
  Sex: Female
  Weight: 49 kg

DRUGS (2)
  1. HUMIRA [Suspect]
     Active Substance: ADALIMUMAB
     Indication: COLITIS
     Route: 058
     Dates: start: 201606, end: 201608
  2. REMSIMA [Suspect]
     Active Substance: INFLIXIMAB
     Indication: COLITIS
     Dosage: 250 MG
     Route: 042
     Dates: start: 201608, end: 20161017

REACTIONS (1)
  - Systemic lupus erythematosus [Recovered/Resolved]

NARRATIVE: CASE EVENT DATE: 20161201
